FAERS Safety Report 10252500 (Version 2)
Quarter: 2014Q2

REPORT INFORMATION
  Report Type: Spontaneous
  Country: CA (occurrence: CA)
  Receive Date: 20140623
  Receipt Date: 20140630
  Transmission Date: 20141212
  Serious: Yes (Other)
  Sender: FDA-Public Use
  Company Number: CA-BAYER-2014-090707

PATIENT
  Age: 49 Year
  Sex: Male

DRUGS (4)
  1. AVELOX [Suspect]
     Indication: SINUSITIS
  2. SYMBICORT [Concomitant]
  3. CORTISONE [Concomitant]
  4. PREDNISONE [Concomitant]

REACTIONS (10)
  - Optic nerve disorder [Not Recovered/Not Resolved]
  - Visual acuity reduced [Not Recovered/Not Resolved]
  - Tendon rupture [Not Recovered/Not Resolved]
  - Tendon pain [Not Recovered/Not Resolved]
  - Myasthenia gravis [None]
  - Chest pain [None]
  - Dyspnoea [None]
  - Hyperhidrosis [None]
  - Depression [None]
  - Suicidal ideation [None]
